FAERS Safety Report 23337738 (Version 1)
Quarter: 2023Q4

REPORT INFORMATION
  Report Type: Spontaneous
  Country: TR (occurrence: TR)
  Receive Date: 20231226
  Receipt Date: 20231226
  Transmission Date: 20240110
  Serious: Yes (Death, Hospitalization, Other)
  Sender: FDA-Public Use
  Company Number: TR-Accord-397791

PATIENT
  Age: 4 Year
  Sex: Female

DRUGS (16)
  1. BUSULFAN [Suspect]
     Active Substance: BUSULFAN
     Indication: Bone marrow conditioning regimen
  2. MYCOPHENOLATE MOFETIL [Suspect]
     Active Substance: MYCOPHENOLATE MOFETIL
     Indication: Prophylaxis against graft versus host disease
  3. CYCLOPHOSPHAMIDE [Suspect]
     Active Substance: CYCLOPHOSPHAMIDE
     Indication: Bone marrow conditioning regimen
     Dosage: (50 MG/KG/DAY) ON DAYS +3 AND +5
  4. MELPHALAN [Suspect]
     Active Substance: MELPHALAN
     Indication: Bone marrow conditioning regimen
  5. EVEROLIMUS [Suspect]
     Active Substance: EVEROLIMUS
     Indication: Transplant rejection
  6. FLUDARABINE [Suspect]
     Active Substance: FLUDARABINE PHOSPHATE
     Indication: Bone marrow conditioning regimen
     Dosage: DAYS -6 TO -3, 42 G/M2
  7. THIOTEPA [Suspect]
     Active Substance: THIOTEPA
     Indication: Bone marrow conditioning regimen
  8. TREOSULFAN [Suspect]
     Active Substance: TREOSULFAN
     Indication: Bone marrow conditioning regimen
     Dosage: DAYS -5 TO -3, AND 10 MG/KG THIOTEPA ON DAY -2
  9. METHYLPREDNISOLONE [Concomitant]
     Active Substance: METHYLPREDNISOLONE
     Dosage: 125 MG, 60 MG, 30 MG, 15 MG, 5 MG, AND 2.5 MG PER DAY
  10. CYCLOSPORINE [Concomitant]
     Active Substance: CYCLOSPORINE
     Indication: Liver transplant
  11. ENOXAPARIN [Concomitant]
     Active Substance: ENOXAPARIN
  12. PREDNISOLONE [Concomitant]
     Active Substance: PREDNISOLONE
  13. TACROLIMUS [Concomitant]
     Active Substance: TACROLIMUS
     Indication: Prophylaxis against graft versus host disease
  14. VORICONAZOLE [Concomitant]
     Active Substance: VORICONAZOLE
     Indication: Aspergillus infection
  15. RUXOLITINIB [Concomitant]
     Active Substance: RUXOLITINIB
  16. MYCOPHENOLATE MOFETIL [Suspect]
     Active Substance: MYCOPHENOLATE MOFETIL
     Indication: Jaundice cholestatic

REACTIONS (7)
  - Acute graft versus host disease [Unknown]
  - Gastrointestinal haemorrhage [Unknown]
  - Cholestasis [Unknown]
  - Aspergillus infection [Unknown]
  - Hepatopulmonary syndrome [Unknown]
  - Cardiopulmonary failure [Fatal]
  - Epilepsy [Fatal]
